FAERS Safety Report 8619062-0 (Version None)
Quarter: 2012Q3

REPORT INFORMATION
  Report Type: 
  Country: None (occurrence: None)
  Receive Date: 20120824
  Receipt Date: 20120815
  Transmission Date: 20120928
  Serious: Yes (Hospitalization)
  Sender: FDA-Public Use
  Company Number: US-BAYER-2012-039954

PATIENT
  Age: 32 Year
  Sex: Female

DRUGS (6)
  1. MORPHINE [Concomitant]
     Dosage: UNK
  2. YASMIN [Suspect]
     Dosage: UNK
     Dates: start: 20050701, end: 20050801
  3. IBUPROFEN [Concomitant]
     Dosage: 600 MG, UNK
  4. VITAMIN E [Concomitant]
     Dosage: UNK
  5. ZOFRAN [Concomitant]
     Indication: NAUSEA
     Dosage: UNK
  6. LEVOTHYROXINE SODIUM [Concomitant]
     Dosage: 0.05 MG, UNK

REACTIONS (7)
  - PULMONARY EMBOLISM [None]
  - PAIN [None]
  - DEEP VEIN THROMBOSIS [None]
  - EMOTIONAL DISTRESS [None]
  - GENERAL PHYSICAL HEALTH DETERIORATION [None]
  - INJURY [None]
  - ANXIETY [None]
